FAERS Safety Report 8762027 (Version 2)
Quarter: 2012Q4

REPORT INFORMATION
  Report Type: 
  Country: CA (occurrence: CA)
  Receive Date: 20120830
  Receipt Date: 20120928
  Transmission Date: 20130627
  Serious: Yes (Hospitalization)
  Sender: FDA-Public Use
  Company Number: CA-PFIZER INC-2012210021

PATIENT
  Age: 72 Year
  Sex: Female
  Weight: 51.7 kg

DRUGS (11)
  1. INSPRA [Suspect]
     Dosage: 25 mg, UNK
     Dates: start: 20120507, end: 20120524
  2. INSPRA [Suspect]
     Dosage: 50 mg,
     Dates: start: 20120525, end: 20120715
  3. INSPRA [Suspect]
     Dosage: 25 mg, UNK
     Dates: start: 20120716
  4. RABEPRAZOLE [Concomitant]
     Dosage: 20 mg, daily
  5. GAVISCON [Concomitant]
     Dosage: UNK
  6. ZANTAC [Concomitant]
     Dosage: 150 UNK, 1x/day
  7. LASIX [Concomitant]
     Dosage: 200 mg, 2x/day (1 DF of 120 mg and 1 DF of 80 mg)
  8. POTASSIUM [Concomitant]
     Dosage: UNK
  9. CALCIUM [Concomitant]
     Dosage: UNK
  10. VENTOLIN [Concomitant]
     Dosage: UNK
  11. ATROVENT [Concomitant]
     Dosage: UNK

REACTIONS (14)
  - Back pain [Recovered/Resolved]
  - Abdominal pain upper [Recovered/Resolved]
  - Headache [Recovered/Resolved]
  - Muscle spasms [Recovered/Resolved]
  - Diarrhoea [Recovered/Resolved]
  - Flatulence [Recovered/Resolved]
  - Pain in extremity [Recovered/Resolved]
  - Nervousness [Recovered/Resolved]
  - Asthenia [Recovered/Resolved]
  - Dyspnoea [Recovered/Resolved]
  - Epistaxis [Recovered/Resolved]
  - Pain in extremity [Recovered/Resolved]
  - Balance disorder [Recovered/Resolved]
  - Peripheral coldness [Recovered/Resolved]
